FAERS Safety Report 7412003-3 (Version None)
Quarter: 2011Q2

REPORT INFORMATION
  Report Type: 
  Country: None (occurrence: None)
  Receive Date: 20110404
  Receipt Date: 20110323
  Transmission Date: 20111010
  Serious: Yes (Hospitalization)
  Sender: FDA-Public Use
  Company Number: 1000019666

PATIENT
  Sex: Female
  Weight: 2.25 kg

DRUGS (3)
  1. CITALOPRAM HYDROBROMIDE [Suspect]
     Dosage: 20 MG (20 MG, 1 IN 1 D), TRANSPLACENTAL
     Route: 064
     Dates: end: 20101108
  2. LAMICTAL [Suspect]
     Dosage: 300 MG (150 MG, 2 IN 1 D), TRANSPLACENTAL
     Route: 064
     Dates: end: 20101108
  3. TRANXENE [Suspect]
     Dosage: (ON REQUEST), TRANSPLACENTAL
     Route: 064
     Dates: end: 20101108

REACTIONS (3)
  - INFANTILE APNOEIC ATTACK [None]
  - BRONCHIOLITIS [None]
  - MATERNAL DRUGS AFFECTING FOETUS [None]
